FAERS Safety Report 9626258 (Version 1)
Quarter: 2013Q4

REPORT INFORMATION
  Report Type: Spontaneous
  Country: US (occurrence: US)
  Receive Date: 20131016
  Receipt Date: 20131016
  Transmission Date: 20140711
  Serious: Yes (Other)
  Sender: FDA-Public Use
  Company Number: US-PFIZER INC-2013296263

PATIENT
  Sex: Female

DRUGS (2)
  1. ZOLOFT [Suspect]
     Dosage: UNK
  2. XALATAN [Suspect]
     Dosage: UNK

REACTIONS (3)
  - Road traffic accident [Unknown]
  - Arthropathy [Unknown]
  - Pain [Unknown]
